FAERS Safety Report 5862922-4 (Version None)
Quarter: 2008Q3

REPORT INFORMATION
  Report Type: 
  Country: None (occurrence: None)
  Receive Date: 20080828
  Receipt Date: 20080822
  Transmission Date: 20090109
  Serious: Yes (Death)
  Sender: FDA-Public Use
  Company Number: A0744802A

PATIENT
  Age: 80 Year
  Sex: Female
  Weight: 97 kg

DRUGS (1)
  1. SERETIDE [Suspect]
     Indication: BRONCHITIS
     Dosage: 2PUFF PER DAY
     Route: 055
     Dates: start: 20060101, end: 20080728

REACTIONS (3)
  - LUNG INFECTION [None]
  - SEPTIC SHOCK [None]
  - URINARY TRACT INFECTION [None]
